FAERS Safety Report 25830140 (Version 1)
Quarter: 2025Q3

REPORT INFORMATION
  Report Type: Spontaneous
  Country: KR (occurrence: KR)
  Receive Date: 20250922
  Receipt Date: 20250922
  Transmission Date: 20251021
  Serious: Yes (Other)
  Sender: GLAXOSMITHKLINE
  Company Number: KR-TAKEDA-2025TUS081763

PATIENT
  Age: 68 Year
  Sex: Female

DRUGS (2)
  1. ZEJULA [Suspect]
     Active Substance: NIRAPARIB
     Indication: Ovarian epithelial cancer
     Route: 065
  2. ZEJULA [Suspect]
     Active Substance: NIRAPARIB
     Route: 065

REACTIONS (2)
  - Ileus [Unknown]
  - Abdominal pain [Unknown]
